FAERS Safety Report 8310591 (Version 3)
Quarter: 2013Q3

REPORT INFORMATION
  Report Type: Report from Study
  Country: DE (occurrence: DE)
  Receive Date: 20111223
  Receipt Date: 20130917
  Transmission Date: 20140515
  Serious: Yes (Hospitalization)
  Sender: FDA-Public Use
  Company Number: DE-ROCHE-1016718

PATIENT
  Age: 60 Year
  Sex: Male
  Weight: 81 kg

DRUGS (13)
  1. MYCOPHENOLATE MOFETIL [Suspect]
     Indication: RENAL TRANSPLANT
     Dosage: LAST DOSE PRIOR TO SAE: 23/JUN/2011
     Route: 048
     Dates: start: 20110208
  2. MYCOPHENOLATE MOFETIL [Suspect]
     Dosage: LAST DOSE PRIOR TO SE; 28/FEB/2011
     Route: 048
     Dates: start: 20110208
  3. MYCOPHENOLATE MOFETIL [Suspect]
     Route: 048
     Dates: start: 20110214
  4. MYCOPHENOLATE MOFETIL [Suspect]
     Route: 048
     Dates: start: 20110728
  5. BASILIXIMAB [Suspect]
     Indication: RENAL TRANSPLANT
     Dosage: LAST DOSE PRIOR TO SAE: 12/FEB/2011
     Route: 042
     Dates: start: 20110208
  6. TACROLIMUS [Suspect]
     Indication: RENAL TRANSPLANT
     Dosage: LAST DOSE PRIOR TO SAE: 23/JUN/2011
     Route: 048
     Dates: start: 20110208
  7. TACROLIMUS [Suspect]
     Dosage: LAST DOSE PRIOR TO SAE: 28/FEB/2011
     Route: 048
     Dates: start: 20110208
  8. TACROLIMUS [Suspect]
     Route: 048
     Dates: start: 20110214
  9. TACROLIMUS [Suspect]
     Route: 048
     Dates: start: 20110728
  10. PREDNISOLONE [Suspect]
     Indication: RENAL TRANSPLANT
     Dosage: LAST DOSE PRIOR TO SAE: 23/JUN/2011
     Route: 048
     Dates: start: 20110208
  11. PREDNISOLONE [Suspect]
     Dosage: LAST DOSE PRIOR TO SAE 28 FEB 2011
     Route: 048
     Dates: start: 20110208
  12. PREDNISOLONE [Suspect]
     Route: 048
     Dates: start: 20110214
  13. PREDNISOLONE [Suspect]
     Dosage: DAILY DOSE
     Route: 048
     Dates: start: 20110728

REACTIONS (3)
  - Wound dehiscence [Recovered/Resolved]
  - Transplant rejection [Recovered/Resolved]
  - Pyelonephritis [Recovered/Resolved]
